FAERS Safety Report 9818024 (Version 1)
Quarter: 2014Q1

REPORT INFORMATION
  Report Type: Spontaneous
  Country: US (occurrence: None)
  Receive Date: 20140113
  Receipt Date: 20140113
  Transmission Date: 20141002
  Serious: Yes (Other)
  Sender: FDA-Public Use
  Company Number: None

PATIENT
  Age: 32 Year
  Sex: Male
  Weight: 108.86 kg

DRUGS (1)
  1. DEXMETHYLPHEN ER [Suspect]
     Indication: ATTENTION DEFICIT/HYPERACTIVITY DISORDER
     Route: 048
     Dates: start: 20131207

REACTIONS (6)
  - Irritability [None]
  - Anxiety [None]
  - Agitation [None]
  - Hallucination, auditory [None]
  - Insomnia [None]
  - Obsessive-compulsive disorder [None]
